FAERS Safety Report 13119234 (Version 1)
Quarter: 2017Q1

REPORT INFORMATION
  Report Type: Spontaneous
  Country: US (occurrence: US)
  Receive Date: 20170116
  Receipt Date: 20170116
  Transmission Date: 20170428
  Serious: No
  Sender: FDA-Public Use
  Company Number: US-CHIESI USA INC.-US-2016CHI000773

PATIENT
  Sex: Female

DRUGS (1)
  1. CUROSURF [Suspect]
     Active Substance: PORACTANT ALFA
     Indication: PRODUCT USED FOR UNKNOWN INDICATION
     Dosage: UNK, [VIAL NOT OPENED]

REACTIONS (2)
  - Skin injury [Unknown]
  - Product package associated injury [Unknown]
